FAERS Safety Report 6052011-0 (Version None)
Quarter: 2009Q1

REPORT INFORMATION
  Report Type: 
  Country: None (occurrence: None)
  Receive Date: 20090122
  Receipt Date: 20090122
  Transmission Date: 20090719
  Serious: Yes (Other)
  Sender: FDA-Public Use
  Company Number: None

PATIENT
  Sex: Female
  Weight: 68.0396 kg

DRUGS (1)
  1. MIRENA [Suspect]
     Dates: start: 19860305, end: 20080123

REACTIONS (5)
  - HEADACHE [None]
  - LOSS OF LIBIDO [None]
  - MUSCLE SPASMS [None]
  - PANIC ATTACK [None]
  - WEIGHT INCREASED [None]
